FAERS Safety Report 6947354-X (Version None)
Quarter: 2010Q3

REPORT INFORMATION
  Report Type: 
  Country: None (occurrence: None)
  Receive Date: 20100827
  Receipt Date: 20090903
  Transmission Date: 20110219
  Serious: No
  Sender: FDA-Public Use
  Company Number: US-ABBOTT-09P-163-0595586-00

PATIENT
  Age: 54 Year
  Sex: Male

DRUGS (4)
  1. NIASPAN [Suspect]
     Indication: HIGH DENSITY LIPOPROTEIN DECREASED
     Dates: start: 20090827
  2. PLAVIX [Concomitant]
     Indication: CORONARY ARTERIAL STENT INSERTION
     Dates: start: 20090801
  3. ASPIRIN [Concomitant]
     Indication: CORONARY ARTERIAL STENT INSERTION
     Dates: start: 20090801
  4. LIPITOR [Concomitant]
     Indication: CORONARY ARTERIAL STENT INSERTION
     Dates: start: 20090801

REACTIONS (2)
  - BLOOD GLUCOSE FLUCTUATION [None]
  - URETHRAL DISORDER [None]
